FAERS Safety Report 6288591-X (Version None)
Quarter: 2009Q3

REPORT INFORMATION
  Report Type: 
  Country: None (occurrence: None)
  Receive Date: 20090729
  Receipt Date: 20090715
  Transmission Date: 20100115
  Serious: Yes (Other)
  Sender: FDA-Public Use
  Company Number: BR-JNJFOC-20090703141

PATIENT
  Age: 9 Year
  Sex: Female

DRUGS (1)
  1. TOPAMAX [Suspect]
     Indication: AUTOSOMAL CHROMOSOME ANOMALY
     Route: 048

REACTIONS (3)
  - ILL-DEFINED DISORDER [None]
  - PHYSICAL PRODUCT LABEL ISSUE [None]
  - PRODUCT QUALITY ISSUE [None]
